FAERS Safety Report 5611345-1 (Version None)
Quarter: 2008Q1

REPORT INFORMATION
  Report Type: 
  Country: None (occurrence: None)
  Receive Date: 20080201
  Receipt Date: 20080122
  Transmission Date: 20080703
  Serious: Yes (Other)
  Sender: FDA-Public Use
  Company Number: JP-PFIZER INC-2008004610

PATIENT
  Sex: Female
  Weight: 66 kg

DRUGS (18)
  1. ZOLOFT [Suspect]
     Indication: INSOMNIA
     Route: 048
  2. ZOLOFT [Suspect]
     Indication: DEPRESSION
  3. ALL OTHER THERAPEUTIC PRODUCTS [Concomitant]
  4. DEPAS [Concomitant]
     Route: 048
     Dates: start: 20060124
  5. LORAZEPAM [Concomitant]
     Route: 048
     Dates: start: 20070614
  6. SEDIEL [Concomitant]
     Route: 048
     Dates: start: 20071212
  7. CHLORPROMAZINE [Concomitant]
     Route: 048
     Dates: start: 20071127
  8. PEROSPIRONE HYDROCHLORIDE [Concomitant]
     Route: 048
     Dates: start: 20070614
  9. AMOBAN [Concomitant]
     Route: 048
     Dates: start: 20050301
  10. MYSLEE [Concomitant]
     Route: 048
     Dates: start: 20051014
  11. NITRAZEPAM [Concomitant]
     Route: 048
     Dates: start: 20051007
  12. LEXOTAN [Concomitant]
     Route: 048
  13. ROHYPNOL [Concomitant]
     Route: 048
     Dates: start: 20060124
  14. DORAL [Concomitant]
     Route: 048
     Dates: start: 20070106
  15. DIAZEPAM [Concomitant]
     Route: 048
     Dates: start: 20070323
  16. VEGETAMIN A [Concomitant]
     Route: 048
     Dates: start: 20071113
  17. HALCION [Concomitant]
     Route: 048
     Dates: start: 20060724
  18. DOGMATYL [Concomitant]
     Route: 048
     Dates: start: 20070628

REACTIONS (2)
  - DEPRESSED LEVEL OF CONSCIOUSNESS [None]
  - HALLUCINATION [None]
